FAERS Safety Report 5366733-8 (Version None)
Quarter: 2007Q2

REPORT INFORMATION
  Report Type: 
  Country: None (occurrence: None)
  Receive Date: 20070622
  Receipt Date: 20060905
  Transmission Date: 20071010
  Serious: No
  Sender: FDA-Public Use
  Company Number: US-ASTRAZENECA-2006UW17408

PATIENT
  Sex: Female

DRUGS (6)
  1. RHINOCORT [Suspect]
     Indication: SINUS DISORDER
     Route: 045
  2. PREVACID [Concomitant]
  3. ADVAIR DISKUS 100/50 [Concomitant]
  4. EVISTA [Concomitant]
  5. LIPITOR [Concomitant]
  6. MULTIVITAMIN [Concomitant]

REACTIONS (2)
  - EYE IRRITATION [None]
  - MEDICATION ERROR [None]
